FAERS Safety Report 19201720 (Version 3)
Quarter: 2021Q2

REPORT INFORMATION
  Report Type: Report from Study
  Country: DE (occurrence: DE)
  Receive Date: 20210430
  Receipt Date: 20210512
  Transmission Date: 20210717
  Serious: Yes (Death, Hospitalization)
  Sender: FDA-Public Use
  Company Number: DE-ROCHE-2810735

PATIENT
  Age: 45 Year
  Sex: Male
  Weight: 114 kg

DRUGS (9)
  1. ZANUBRUTINIB [Suspect]
     Active Substance: ZANUBRUTINIB
     Indication: CHRONIC LYMPHOCYTIC LEUKAEMIA RECURRENT
     Dosage: CYCLE 1: CYCLES 2 ? 6: D1?28: 2 X 160MG P.O.?LAST DOSE 1000 MG OF ZANUBRUTINIB WAS ADMINISTERED ON 2
     Route: 048
     Dates: start: 20210302, end: 20210322
  2. OBINUTUZUMAB. [Suspect]
     Active Substance: OBINUTUZUMAB
     Indication: CHRONIC LYMPHOCYTIC LEUKAEMIA RECURRENT
     Dosage: LAST DOSE 1000 MG OF OBINUTUZUMAB WAS ADMINISTERED ON 02/MAR/2021?CYCLE 1: D1 ? 100 MG, D1 (OR D2) ?
     Route: 042
     Dates: start: 20210202, end: 20210302
  3. METPROLOL [Concomitant]
     Active Substance: METOPROLOL
     Route: 048
  4. FEBUXOSTAT. [Concomitant]
     Active Substance: FEBUXOSTAT
     Route: 048
     Dates: start: 20210227
  5. OBINUTUZUMAB. [Suspect]
     Active Substance: OBINUTUZUMAB
     Indication: CHRONIC LYMPHOCYTIC LEUKAEMIA REFRACTORY
  6. LAMIVUDINE. [Concomitant]
     Active Substance: LAMIVUDINE
     Route: 048
     Dates: start: 20210216
  7. L?THYROXINE [Concomitant]
     Active Substance: LEVOTHYROXINE
     Route: 048
  8. CANDESARTAN. [Concomitant]
     Active Substance: CANDESARTAN
  9. ZANUBRUTINIB [Suspect]
     Active Substance: ZANUBRUTINIB
     Indication: CHRONIC LYMPHOCYTIC LEUKAEMIA REFRACTORY

REACTIONS (1)
  - COVID-19 [Fatal]

NARRATIVE: CASE EVENT DATE: 20210322
